FAERS Safety Report 8236733-9 (Version None)
Quarter: 2012Q1

REPORT INFORMATION
  Report Type: 
  Country: None (occurrence: None)
  Receive Date: 20120326
  Receipt Date: 20120326
  Transmission Date: 20120608
  Serious: Yes (Disabling)
  Sender: FDA-Public Use
  Company Number: None

PATIENT
  Age: 23 Year
  Sex: Male
  Weight: 74.8435 kg

DRUGS (2)
  1. PROPECIA [Suspect]
     Indication: ANDROGENETIC ALOPECIA
     Dosage: 0.5 TO 1.0 MG ONCE A DAY ORAL
     Route: 048
     Dates: start: 20090901, end: 20100501
  2. PROPECIA [Suspect]
     Indication: ANDROGENETIC ALOPECIA
     Dosage: 0.5 TO 1.0 MG ONCE A DAY ORAL
     Route: 048
     Dates: start: 20080401, end: 20080407

REACTIONS (9)
  - CONVULSION [None]
  - AFFECTIVE DISORDER [None]
  - NERVOUS SYSTEM DISORDER [None]
  - DRUG RESISTANCE [None]
  - PANIC ATTACK [None]
  - ANXIETY [None]
  - BLOOD FOLLICLE STIMULATING HORMONE DECREASED [None]
  - ERECTILE DYSFUNCTION [None]
  - PUDENDAL NERVE TERMINAL MOTOR LATENCY TEST ABNORMAL [None]
